FAERS Safety Report 7669341-9 (Version None)
Quarter: 2011Q3

REPORT INFORMATION
  Report Type: 
  Country: None (occurrence: None)
  Receive Date: 20110808
  Receipt Date: 20110727
  Transmission Date: 20111222
  Serious: Yes (Other)
  Sender: FDA-Public Use
  Company Number: JP-ROCHE-779593

PATIENT
  Sex: Female
  Weight: 57 kg

DRUGS (20)
  1. CELECOXIB [Concomitant]
     Route: 048
  2. LENDORMIN [Concomitant]
     Route: 048
     Dates: start: 20100410, end: 20110402
  3. LEVOFLOXACIN [Concomitant]
     Route: 048
     Dates: start: 20110402, end: 20110415
  4. ASPARA K [Concomitant]
     Route: 048
     Dates: start: 20110207, end: 20110505
  5. ACTEMRA [Suspect]
     Route: 041
     Dates: start: 20100410, end: 20110402
  6. LEVOFLOXACIN [Concomitant]
     Route: 048
     Dates: start: 20100410, end: 20110107
  7. HIRUDOID [Concomitant]
     Dosage: PROPER QUANTITY
     Route: 061
     Dates: start: 20110410
  8. MINOCYCLINE HCL [Concomitant]
     Route: 048
     Dates: start: 20110402, end: 20110415
  9. PREDNISOLONE [Concomitant]
     Route: 048
  10. PREDNISOLONE [Concomitant]
     Route: 048
     Dates: start: 20100410
  11. ASPARA K [Concomitant]
     Route: 048
     Dates: start: 20100410, end: 20110206
  12. ASPARA K [Concomitant]
     Route: 048
     Dates: start: 20110506, end: 20110516
  13. CLARITHROMYCIN [Concomitant]
     Route: 048
     Dates: start: 20100410, end: 20110107
  14. ALFAROL [Concomitant]
     Route: 048
     Dates: start: 20100410
  15. SULFAMETHOXAZOLE [Concomitant]
     Route: 048
     Dates: start: 20110604, end: 20110608
  16. LANSOPRAZOLE [Concomitant]
     Route: 048
     Dates: start: 20100410
  17. LEVOFLOXACIN [Concomitant]
     Route: 048
     Dates: start: 20110604, end: 20110617
  18. ZOLPIDEM [Concomitant]
     Route: 048
     Dates: start: 20110507
  19. ACTEMRA [Suspect]
     Indication: RHEUMATOID ARTHRITIS
     Route: 041
     Dates: start: 20081209
  20. RHEUMATREX [Concomitant]
     Route: 048

REACTIONS (2)
  - SKIN INFECTION [None]
  - SKIN ULCER [None]
